FAERS Safety Report 6471496-9 (Version None)
Quarter: 2009Q4

REPORT INFORMATION
  Report Type: 
  Country: None (occurrence: None)
  Receive Date: 20091203
  Receipt Date: 20080611
  Transmission Date: 20100525
  Serious: Yes (Hospitalization)
  Sender: FDA-Public Use
  Company Number: GB-ELI_LILLY_AND_COMPANY-GB200802005844

PATIENT
  Sex: Female

DRUGS (2)
  1. FORTEO [Suspect]
     Indication: OSTEOPOROSIS
     Dosage: 20 MG, UNKNOWN
     Route: 058
     Dates: start: 20080101
  2. ASPIRIN [Concomitant]
     Dosage: 75 MG, UNKNOWN
     Route: 048

REACTIONS (3)
  - DIZZINESS [None]
  - MALAISE [None]
  - PALPITATIONS [None]
